FAERS Safety Report 4640501-4 (Version None)
Quarter: 2005Q2

REPORT INFORMATION
  Report Type: 
  Country: None (occurrence: None)
  Receive Date: 20050328
  Receipt Date: 20050131
  Transmission Date: 20051028
  Serious: No
  Sender: FDA-Public Use
  Company Number: USA050289550

PATIENT
  Sex: Female

DRUGS (2)
  1. STRATTERA [Suspect]
     Indication: ATTENTION DEFICIT/HYPERACTIVITY DISORDER
     Dosage: 60 MG DAY
     Dates: start: 20050127
  2. NASONEX [Concomitant]

REACTIONS (2)
  - CONSTIPATION [None]
  - MOOD SWINGS [None]
